FAERS Safety Report 4393852-5 (Version None)
Quarter: 2004Q3

REPORT INFORMATION
  Report Type: 
  Country: None (occurrence: None)
  Receive Date: 20040702
  Receipt Date: 20040629
  Transmission Date: 20050211
  Serious: Yes (Death)
  Sender: FDA-Public Use
  Company Number: 2004UW13449

PATIENT

DRUGS (1)
  1. SEROQUEL [Suspect]

REACTIONS (2)
  - MEDICATION ERROR [None]
  - TREATMENT NONCOMPLIANCE [None]
